FAERS Safety Report 24808753 (Version 2)
Quarter: 2025Q1

REPORT INFORMATION
  Report Type: Spontaneous
  Country: US (occurrence: US)
  Receive Date: 20250106
  Receipt Date: 20250212
  Transmission Date: 20250409
  Serious: Yes (Hospitalization)
  Sender: TAKEDA
  Company Number: US-TAKEDA-2024TUS130721

PATIENT

DRUGS (3)
  1. VYVANSE [Suspect]
     Active Substance: LISDEXAMFETAMINE DIMESYLATE
     Indication: Attention deficit hyperactivity disorder
  2. LISDEXAMFETAMINE DIMESYLATE [Suspect]
     Active Substance: LISDEXAMFETAMINE DIMESYLATE
     Indication: Attention deficit hyperactivity disorder
  3. ADDERALL XR [Suspect]
     Active Substance: AMPHETAMINE ASPARTATE\AMPHETAMINE SULFATE\DEXTROAMPHETAMINE SACCHARATE\DEXTROAMPHETAMINE SULFATE
     Indication: Attention deficit hyperactivity disorder

REACTIONS (18)
  - Agoraphobia [Unknown]
  - Paranoia [Unknown]
  - Weight increased [Unknown]
  - Brain fog [Unknown]
  - Blood glucose decreased [Unknown]
  - Bowel movement irregularity [Unknown]
  - Skin burning sensation [Unknown]
  - Product physical issue [Unknown]
  - Catatonia [Unknown]
  - Wrong technique in product usage process [Unknown]
  - Skin plaque [Unknown]
  - Drug ineffective [Unknown]
  - Feeling abnormal [Unknown]
  - Quality of life decreased [Unknown]
  - Lethargy [Unknown]
  - Pruritus [Unknown]
  - Abdominal pain upper [Unknown]
  - Headache [Unknown]
